FAERS Safety Report 21883021 (Version 6)
Quarter: 2023Q2

REPORT INFORMATION
  Report Type: Report from Study
  Country: US (occurrence: US)
  Receive Date: 20230119
  Receipt Date: 20230518
  Transmission Date: 20230721
  Serious: Yes (Other)
  Sender: FDA-Public Use
  Company Number: US-002147023-NVSC2023US008774

PATIENT
  Sex: Male

DRUGS (2)
  1. COSENTYX [Suspect]
     Active Substance: SECUKINUMAB
     Indication: Psoriasis
     Dosage: UNK
     Route: 065
  2. COSENTYX [Suspect]
     Active Substance: SECUKINUMAB
     Indication: Psoriatic arthropathy

REACTIONS (9)
  - Autoimmune disorder [Unknown]
  - COVID-19 [Unknown]
  - Eye pain [Unknown]
  - Hypokinesia [Unknown]
  - Headache [Unknown]
  - Injection site bruising [Unknown]
  - Injection site pain [Unknown]
  - Psoriasis [Unknown]
  - Therapeutic response shortened [Unknown]
